FAERS Safety Report 12821103 (Version 1)
Quarter: 2016Q4

REPORT INFORMATION
  Report Type: Spontaneous
  Country: JP (occurrence: JP)
  Receive Date: 20161006
  Receipt Date: 20161006
  Transmission Date: 20170207
  Serious: Yes (Death, Other)
  Sender: FDA-Public Use
  Company Number: JP-PFIZER INC-2016447233

PATIENT
  Age: 44 Year
  Sex: Male

DRUGS (17)
  1. CISPLATIN. [Suspect]
     Active Substance: CISPLATIN
     Indication: TESTICULAR GERM CELL TUMOUR
     Dosage: THREE COURSES
  2. ETOPOSIDE. [Suspect]
     Active Substance: ETOPOSIDE
     Dosage: THREE COURSES
  3. IFOSFAMIDE. [Suspect]
     Active Substance: IFOSFAMIDE
     Indication: TESTICULAR GERM CELL TUMOUR
     Dosage: SIX COURSES
     Dates: start: 199402
  4. CISPLATIN. [Suspect]
     Active Substance: CISPLATIN
     Dosage: TWO COURSES
  5. BLEOMYCIN [Suspect]
     Active Substance: BLEOMYCIN SULFATE
     Indication: TESTICULAR GERM CELL TUMOUR
     Dosage: THREE COURSES
  6. BLEOMYCIN [Suspect]
     Active Substance: BLEOMYCIN SULFATE
     Dosage: SIX COURSES
  7. CISPLATIN. [Suspect]
     Active Substance: CISPLATIN
     Dosage: FIVE COURSES
  8. ETOPOSIDE. [Suspect]
     Active Substance: ETOPOSIDE
     Indication: TESTICULAR GERM CELL TUMOUR
     Dosage: SIX COURSES
  9. VINBLASTINE [Suspect]
     Active Substance: VINBLASTINE
     Indication: TESTICULAR GERM CELL TUMOUR
     Dosage: THREE COURSES
  10. VINBLASTINE [Suspect]
     Active Substance: VINBLASTINE
     Dosage: TWO COURSES
  11. VINBLASTINE [Suspect]
     Active Substance: VINBLASTINE
     Dosage: SIX COURSES
     Dates: start: 199402
  12. CISPLATIN. [Suspect]
     Active Substance: CISPLATIN
     Dosage: SIX COURSES
  13. CISPLATIN. [Suspect]
     Active Substance: CISPLATIN
     Dosage: THREE COURSES
  14. METHOTREXATE. [Suspect]
     Active Substance: METHOTREXATE
     Indication: TESTICULAR GERM CELL TUMOUR
     Dosage: THREE COURSES
  15. BLEOMYCIN [Suspect]
     Active Substance: BLEOMYCIN SULFATE
     Dosage: TWO COURSES
  16. CISPLATIN. [Suspect]
     Active Substance: CISPLATIN
     Dosage: SIX COURSES
     Dates: start: 199402
  17. ACTINOMYCIN D [Suspect]
     Active Substance: DACTINOMYCIN
     Indication: TESTICULAR GERM CELL TUMOUR
     Dosage: TWO COURSES

REACTIONS (2)
  - Second primary malignancy [Fatal]
  - Acute monocytic leukaemia [Fatal]
